FAERS Safety Report 6165697-7 (Version None)
Quarter: 2009Q2

REPORT INFORMATION
  Report Type: 
  Country: None (occurrence: None)
  Receive Date: 20090422
  Receipt Date: 20090409
  Transmission Date: 20091009
  Serious: Yes (Death, Life-Threatening)
  Sender: FDA-Public Use
  Company Number: 246278

PATIENT
  Age: 55 Year
  Sex: Female

DRUGS (7)
  1. MITOXANTRONE HYDROCHLORIDE [Suspect]
     Indication: IMMUNOSUPPRESSION
     Dosage: 180 MG, TOTAL, INTRAVENOUS
     Route: 042
     Dates: start: 20010502, end: 20020710
  2. AZATHIOPRINE [Suspect]
     Indication: IMMUNOSUPPRESSION
     Dosage: 100 MG, ONCE A DAY, ORAL
     Route: 048
     Dates: start: 20020216, end: 20090204
  3. DESMOPRESSIN ACETATE [Concomitant]
  4. DEXAMETHASONE 4MG TAB [Concomitant]
  5. FELODIPINE [Concomitant]
  6. LEVOTHYROXINE SODIUM [Concomitant]
  7. RAMIPRIL [Concomitant]

REACTIONS (1)
  - METASTASES TO LIVER [None]
